FAERS Safety Report 6503180-7 (Version None)
Quarter: 2009Q4

REPORT INFORMATION
  Report Type: 
  Country: None (occurrence: None)
  Receive Date: 20091217
  Receipt Date: 20091209
  Transmission Date: 20100525
  Serious: Yes (Hospitalization, Other)
  Sender: FDA-Public Use
  Company Number: US-JNJFOC-20091203709

PATIENT
  Sex: Female
  Weight: 58.97 kg

DRUGS (2)
  1. DURAGESIC-100 [Suspect]
     Indication: INTERVERTEBRAL DISC DEGENERATION
     Dosage: NDC#: 5045-8035-05
     Route: 062
  2. DURAGESIC-100 [Suspect]
     Dosage: NDC#: 5045-8093-07
     Route: 062

REACTIONS (3)
  - APPLICATION SITE ERYTHEMA [None]
  - BACK INJURY [None]
  - DRUG EFFECT DECREASED [None]
